FAERS Safety Report 24678055 (Version 2)
Quarter: 2024Q4

REPORT INFORMATION
  Report Type: Spontaneous
  Country: JP (occurrence: JP)
  Receive Date: 20241129
  Receipt Date: 20241204
  Transmission Date: 20250115
  Serious: Yes (Hospitalization, Other)
  Sender: ROCHE
  Company Number: JP-CHUGAI-2024040794

PATIENT
  Age: 56 Year
  Sex: Male

DRUGS (6)
  1. PIASKY [Suspect]
     Active Substance: CROVALIMAB-AKKZ
     Indication: Paroxysmal nocturnal haemoglobinuria
     Dosage: 340 MILLIGRAM
     Route: 050
     Dates: start: 20241024, end: 20241114
  2. AUGMENTIN [Concomitant]
     Active Substance: AMOXICILLIN\CLAVULANATE POTASSIUM
     Indication: Cellulitis
     Dosage: UNK
     Route: 065
  3. AMOXICILLIN TRIHYDRATE [Concomitant]
     Active Substance: AMOXICILLIN
     Indication: Cellulitis
     Dosage: UNK
     Route: 065
  4. METHENOLONE ACETATE [Concomitant]
     Active Substance: METHENOLONE ACETATE
     Dosage: UNK
     Route: 065
  5. ACETAMINOPHEN [Concomitant]
     Active Substance: ACETAMINOPHEN
     Dosage: UNK
     Route: 065
  6. LOXOPROFEN SODIUM DIHYDRATE [Concomitant]
     Active Substance: LOXOPROFEN SODIUM DIHYDRATE
     Dosage: UNK
     Route: 065

REACTIONS (6)
  - Hepatic function abnormal [Unknown]
  - Renal impairment [Unknown]
  - Cellulitis [Unknown]
  - Type III immune complex mediated reaction [Unknown]
  - Jaundice [Unknown]
  - Anaemia [Unknown]

NARRATIVE: CASE EVENT DATE: 20241120
